FAERS Safety Report 5125860-0 (Version None)
Quarter: 2006Q4

REPORT INFORMATION
  Report Type: 
  Country: None (occurrence: None)
  Receive Date: 20061012
  Receipt Date: 20061005
  Transmission Date: 20070319
  Serious: Yes (Other)
  Sender: FDA-Public Use
  Company Number: AU-GLAXOSMITHKLINE-B0441038A

PATIENT
  Age: 80 Year
  Sex: Female

DRUGS (2)
  1. PANADOL RAPID [Suspect]
     Dosage: 2UNIT PER DAY
     Route: 048
     Dates: start: 20061001
  2. PANAMAX [Concomitant]

REACTIONS (2)
  - ASTHMA [None]
  - DYSPNOEA [None]
